FAERS Safety Report 9376279 (Version 1)
Quarter: 2013Q2

REPORT INFORMATION
  Report Type: Spontaneous
  Country: US (occurrence: None)
  Receive Date: 20130628
  Receipt Date: 20130628
  Transmission Date: 20140414
  Serious: Yes (Disabling)
  Sender: FDA-Public Use
  Company Number: None

PATIENT
  Age: 40 Year
  Sex: Male

DRUGS (1)
  1. CEREBYX [Suspect]
     Dosage: 1000 MG PE
     Route: 042

REACTIONS (3)
  - Burning sensation [None]
  - Erythema [None]
  - Infusion related reaction [None]
